FAERS Safety Report 8555236-5 (Version None)
Quarter: 2012Q3

REPORT INFORMATION
  Report Type: 
  Country: None (occurrence: None)
  Receive Date: 20120731
  Receipt Date: 20120723
  Transmission Date: 20120928
  Serious: Yes (Life-Threatening, Hospitalization)
  Sender: FDA-Public Use
  Company Number: US-009507513-1207USA010687

PATIENT

DRUGS (6)
  1. ASPIRIN [Concomitant]
     Route: 048
  2. METOPROLOL TARTRATE [Concomitant]
     Route: 048
  3. AMLODIPINE [Suspect]
     Dosage: 10 MG, QD
     Route: 048
  4. ZOCOR [Interacting]
     Dosage: 80 MG, QD
     Route: 048
  5. LISINOPRIL [Concomitant]
     Route: 048
  6. LANOXIN [Concomitant]
     Route: 048

REACTIONS (12)
  - TRANSAMINASES INCREASED [None]
  - GENERAL PHYSICAL HEALTH DETERIORATION [None]
  - GAIT DISTURBANCE [None]
  - DRUG INTERACTION [None]
  - METABOLIC ACIDOSIS [None]
  - RHABDOMYOLYSIS [None]
  - DECREASED APPETITE [None]
  - OLIGURIA [None]
  - NIGHT SWEATS [None]
  - LISTLESS [None]
  - RENAL FAILURE [None]
  - ASTHENIA [None]
